FAERS Safety Report 5937890-7 (Version None)
Quarter: 2008Q4

REPORT INFORMATION
  Report Type: 
  Country: None (occurrence: None)
  Receive Date: 20081031
  Receipt Date: 20081020
  Transmission Date: 20090506
  Serious: Yes (Life-Threatening, Hospitalization)
  Sender: FDA-Public Use
  Company Number: DE-PFIZER INC-2008088817

PATIENT
  Sex: Female

DRUGS (6)
  1. SUTENT [Suspect]
     Indication: METASTATIC RENAL CELL CARCINOMA
     Dosage: DAILY DOSE:50MG
     Route: 048
  2. VOLTAREN RESINAT ^NOVARTIS^ [Interacting]
     Route: 048
  3. FORTECORTIN [Interacting]
     Route: 048
  4. OMEPRAZOLE [Concomitant]
     Dosage: DAILY DOSE:40MG
     Route: 048
  5. RAMIPRIL [Concomitant]
     Dosage: DAILY DOSE:2.5MG
     Route: 048
  6. ACETAMINOPHEN [Concomitant]
     Dosage: DAILY DOSE:500MG
     Route: 048

REACTIONS (2)
  - DRUG INTERACTION [None]
  - GASTRIC ULCER PERFORATION [None]
